FAERS Safety Report 6379723-3 (Version None)
Quarter: 2009Q3

REPORT INFORMATION
  Report Type: 
  Country: None (occurrence: None)
  Receive Date: 20090924
  Receipt Date: 20090924
  Transmission Date: 20100115
  Serious: Yes (Hospitalization)
  Sender: FDA-Public Use
  Company Number: None

PATIENT
  Age: 39 Year
  Sex: Female
  Weight: 58.9676 kg

DRUGS (1)
  1. REGLAN [Suspect]
     Indication: IMPAIRED GASTRIC EMPTYING
     Dosage: 10MG. 4 TIMES PER DAY PO
     Route: 048
     Dates: start: 20090723, end: 20090725

REACTIONS (6)
  - BRUXISM [None]
  - DRUG HYPERSENSITIVITY [None]
  - EYE ROLLING [None]
  - MUSCLE DISORDER [None]
  - MUSCLE TIGHTNESS [None]
  - PAIN [None]
